FAERS Safety Report 8268099-2 (Version None)
Quarter: 2012Q2

REPORT INFORMATION
  Report Type: 
  Country: None (occurrence: None)
  Receive Date: 20120409
  Receipt Date: 20120329
  Transmission Date: 20120825
  Serious: Yes (Death)
  Sender: FDA-Public Use
  Company Number: US-ROCHE-1052726

PATIENT
  Sex: Female

DRUGS (8)
  1. AMIODARONE HYDROCHLORIDE [Concomitant]
  2. MAG OXIDE [Concomitant]
  3. LEVOTHYROXINE SODIUM [Concomitant]
  4. DIOVAN HCT [Concomitant]
  5. NIFEDIPINE [Concomitant]
  6. LUCENTIS [Suspect]
     Indication: DIABETIC RETINAL OEDEMA
  7. FUROSEMIDE [Concomitant]
  8. NITRENDIPINE [Concomitant]

REACTIONS (1)
  - DEATH [None]
